FAERS Safety Report 9212827 (Version 1)
Quarter: 2013Q1

REPORT INFORMATION
  Report Type: Spontaneous
  Country: US (occurrence: None)
  Receive Date: 20120820
  Receipt Date: 20120820
  Transmission Date: 20140127
  Serious: No
  Sender: FDA-Public Use
  Company Number: 1000031411

PATIENT
  Age: 40 Year
  Sex: Female

DRUGS (4)
  1. VIIBRYD [Suspect]
     Indication: DEPRESSION
     Dosage: 5 MG (5MG 1 IN 1 D)
     Dates: start: 201204, end: 2012
  2. VICTOZA (LIRAGLUTIDE) (LIRAGLUTIDE) [Concomitant]
  3. METFORMIN (METFORMIN) (METFORMIN) [Concomitant]
  4. LEVOXYL (LEVOTHYROXINE SODIUM) (LEVOTHYROXINE SODIUM) [Concomitant]

REACTIONS (1)
  - Blood glucose increased [None]
